FAERS Safety Report 5474976-8 (Version None)
Quarter: 2007Q4

REPORT INFORMATION
  Report Type: 
  Country: None (occurrence: None)
  Receive Date: 20071002
  Receipt Date: 20070924
  Transmission Date: 20080405
  Serious: No
  Sender: FDA-Public Use
  Company Number: DE-BAXTER-2007BH007373

PATIENT
  Age: 67 Year
  Sex: Female
  Weight: 65 kg

DRUGS (9)
  1. GAMMAGARD LIQUID [Suspect]
     Indication: MULTIPLE SCLEROSIS
     Route: 065
     Dates: start: 20070820, end: 20070820
  2. METOPROLOL SUCCINATE [Concomitant]
  3. LEXOTANIL [Concomitant]
  4. LIORESAL [Concomitant]
  5. MEMANTINE HCL [Concomitant]
  6. ACIMETHIN [Concomitant]
  7. PHENYTOIN [Concomitant]
  8. NEUROCIL [Concomitant]
  9. PREGABALIN [Concomitant]

REACTIONS (3)
  - DIZZINESS [None]
  - HYPOTENSION [None]
  - LOSS OF CONSCIOUSNESS [None]
